FAERS Safety Report 15158315 (Version 2)
Quarter: 2018Q4

REPORT INFORMATION
  Report Type: Spontaneous
  Country: CH (occurrence: CH)
  Receive Date: 20180718
  Receipt Date: 20181008
  Transmission Date: 20190204
  Serious: Yes (Other)
  Sender: FDA-Public Use
  Company Number: CH-ROCHE-2151455

PATIENT
  Sex: Female
  Weight: 61 kg

DRUGS (5)
  1. HERCEPTIN [Suspect]
     Active Substance: TRASTUZUMAB
     Indication: ADENOCARCINOMA OF THE CERVIX
     Route: 065
     Dates: start: 201801, end: 201806
  2. TAXOL [Concomitant]
     Active Substance: PACLITAXEL
     Route: 065
     Dates: start: 201801, end: 201806
  3. TAXOL [Concomitant]
     Active Substance: PACLITAXEL
     Indication: ADENOCARCINOMA OF THE CERVIX
     Route: 065
     Dates: start: 201703, end: 201707
  4. AVASTIN [Suspect]
     Active Substance: BEVACIZUMAB
     Indication: ADENOCARCINOMA OF THE CERVIX
     Route: 042
     Dates: start: 201703, end: 201708
  5. CARBOPLATIN. [Concomitant]
     Active Substance: CARBOPLATIN
     Indication: ADENOCARCINOMA OF THE CERVIX
     Route: 065
     Dates: start: 201703, end: 201707

REACTIONS (3)
  - Off label use [Unknown]
  - Adenocarcinoma of the cervix [Not Recovered/Not Resolved]
  - Pulmonary embolism [Unknown]
